FAERS Safety Report 9135625 (Version 2)
Quarter: 2013Q2

REPORT INFORMATION
  Report Type: Spontaneous
  Country: US (occurrence: US)
  Receive Date: 20130304
  Receipt Date: 20130405
  Transmission Date: 20140414
  Serious: No
  Sender: FDA-Public Use
  Company Number: US-009507513-1303USA000034

PATIENT
  Sex: Female
  Weight: 71.2 kg

DRUGS (2)
  1. IMPLANON [Suspect]
     Indication: CONTRACEPTION
     Dosage: 1 ROD
     Route: 059
     Dates: start: 20120417
  2. IBUPROFEN [Concomitant]

REACTIONS (2)
  - Device breakage [Unknown]
  - No adverse event [Unknown]
